FAERS Safety Report 15014004 (Version 1)
Quarter: 2018Q2

REPORT INFORMATION
  Report Type: Spontaneous
  Country: PL (occurrence: PL)
  Receive Date: 20180614
  Receipt Date: 20180614
  Transmission Date: 20180711
  Serious: Yes (Other)
  Sender: FDA-Public Use
  Company Number: PL-MYLANLABS-2018M1039412

PATIENT
  Age: 14 Month
  Sex: Female

DRUGS (4)
  1. LEVETIRACETAM. [Suspect]
     Active Substance: LEVETIRACETAM
     Indication: STRABISMUS
     Route: 065
  2. LEVETIRACETAM. [Suspect]
     Active Substance: LEVETIRACETAM
     Indication: TREMOR
  3. VALPROIC ACID. [Concomitant]
     Active Substance: VALPROIC ACID
     Indication: TREMOR
  4. VALPROIC ACID. [Concomitant]
     Active Substance: VALPROIC ACID
     Indication: STRABISMUS
     Route: 065

REACTIONS (5)
  - Tremor [Recovered/Resolved]
  - Eye disorder [Recovered/Resolved]
  - Strabismus [Recovered/Resolved]
  - Condition aggravated [Recovered/Resolved]
  - Infantile spasms [Recovered/Resolved]
